FAERS Safety Report 7116942-2 (Version None)
Quarter: 2010Q4

REPORT INFORMATION
  Report Type: 
  Country: None (occurrence: None)
  Receive Date: 20101115
  Receipt Date: 20101026
  Transmission Date: 20110411
  Serious: Yes (Other)
  Sender: FDA-Public Use
  Company Number: FKO201000495

PATIENT
  Age: 48 Year
  Sex: Male

DRUGS (4)
  1. METHOTREXATE (MANUFACTURER UNKNOWN) [Suspect]
     Indication: SYSTEMIC LUPUS ERYTHEMATOSUS
     Dosage: 1 WK
  2. HYDROXYCHLOROQUINE [Concomitant]
  3. PREDNISONE [Concomitant]
  4. DAPSONE [Concomitant]

REACTIONS (2)
  - HODGKIN'S DISEASE [None]
  - LEUKOPENIA [None]
